FAERS Safety Report 19066573 (Version 1)
Quarter: 2021Q1

REPORT INFORMATION
  Report Type: Spontaneous
  Country: US (occurrence: US)
  Receive Date: 20210328
  Receipt Date: 20210328
  Transmission Date: 20210420
  Serious: Yes (Life-Threatening, Hospitalization)
  Sender: FDA-Public Use
  Company Number: US-TEVA-2021-US-1893788

PATIENT
  Age: 75 Year
  Sex: Male

DRUGS (32)
  1. MEXILETINE [Suspect]
     Active Substance: MEXILETINE
     Indication: SHOCK
  2. FLUDROCORTISONE [Suspect]
     Active Substance: FLUDROCORTISONE
     Indication: ANGIOPATHY
  3. PSEUDOEPHEDRINE. [Suspect]
     Active Substance: PSEUDOEPHEDRINE HYDROCHLORIDE
     Indication: SHOCK
  4. THERMOTABS [DIETARY SUPPLEMENT] [Suspect]
     Active Substance: DIETARY SUPPLEMENT
     Indication: SHOCK
  5. THERMOTABS [DIETARY SUPPLEMENT] [Suspect]
     Active Substance: DIETARY SUPPLEMENT
     Indication: HAEMODYNAMIC INSTABILITY
  6. FLUDROCORTISONE [Suspect]
     Active Substance: FLUDROCORTISONE
     Indication: HAEMODYNAMIC INSTABILITY
  7. CARBAMAZEPINE. [Suspect]
     Active Substance: CARBAMAZEPINE
     Indication: SHOCK
  8. CARBAMAZEPINE. [Suspect]
     Active Substance: CARBAMAZEPINE
     Indication: HAEMODYNAMIC INSTABILITY
  9. CARBAMAZEPINE. [Suspect]
     Active Substance: CARBAMAZEPINE
     Indication: ANGIOPATHY
  10. GABAPENTIN. [Suspect]
     Active Substance: GABAPENTIN
     Indication: GLOSSOPHARYNGEAL NEURALGIA
     Route: 065
     Dates: start: 2019
  11. FLUDROCORTISONE [Suspect]
     Active Substance: FLUDROCORTISONE
     Indication: GLOSSOPHARYNGEAL NEURALGIA
     Route: 065
     Dates: start: 2019
  12. PYRIDOSTIGMINE [Suspect]
     Active Substance: PYRIDOSTIGMINE
     Indication: SHOCK
  13. PYRIDOSTIGMINE [Suspect]
     Active Substance: PYRIDOSTIGMINE
     Indication: HAEMODYNAMIC INSTABILITY
  14. DROXIDOPA [Suspect]
     Active Substance: DROXIDOPA
     Indication: ANGIOPATHY
  15. PSEUDOEPHEDRINE. [Suspect]
     Active Substance: PSEUDOEPHEDRINE HYDROCHLORIDE
     Indication: ANGIOPATHY
  16. GABAPENTIN. [Suspect]
     Active Substance: GABAPENTIN
     Indication: ANGIOPATHY
  17. MEXILETINE [Suspect]
     Active Substance: MEXILETINE
     Indication: GLOSSOPHARYNGEAL NEURALGIA
     Route: 065
     Dates: start: 2019
  18. MEXILETINE [Suspect]
     Active Substance: MEXILETINE
     Indication: ANGIOPATHY
  19. PYRIDOSTIGMINE [Suspect]
     Active Substance: PYRIDOSTIGMINE
     Indication: ANGIOPATHY
  20. THERMOTABS [DIETARY SUPPLEMENT] [Suspect]
     Active Substance: DIETARY SUPPLEMENT
     Indication: ANGIOPATHY
  21. CARBAMAZEPINE. [Suspect]
     Active Substance: CARBAMAZEPINE
     Indication: GLOSSOPHARYNGEAL NEURALGIA
     Route: 065
     Dates: start: 2019
  22. MEXILETINE [Suspect]
     Active Substance: MEXILETINE
     Indication: HAEMODYNAMIC INSTABILITY
  23. GABAPENTIN. [Suspect]
     Active Substance: GABAPENTIN
     Indication: SHOCK
  24. GABAPENTIN. [Suspect]
     Active Substance: GABAPENTIN
     Indication: HAEMODYNAMIC INSTABILITY
  25. FLUDROCORTISONE [Suspect]
     Active Substance: FLUDROCORTISONE
     Indication: SHOCK
  26. DROXIDOPA [Suspect]
     Active Substance: DROXIDOPA
     Indication: GLOSSOPHARYNGEAL NEURALGIA
     Route: 065
     Dates: start: 2019
  27. PSEUDOEPHEDRINE. [Suspect]
     Active Substance: PSEUDOEPHEDRINE HYDROCHLORIDE
     Indication: HAEMODYNAMIC INSTABILITY
  28. THERMOTABS [DIETARY SUPPLEMENT] [Suspect]
     Active Substance: DIETARY SUPPLEMENT
     Indication: GLOSSOPHARYNGEAL NEURALGIA
     Route: 065
     Dates: start: 2019
  29. PYRIDOSTIGMINE [Suspect]
     Active Substance: PYRIDOSTIGMINE
     Indication: GLOSSOPHARYNGEAL NEURALGIA
     Route: 065
     Dates: start: 2019
  30. DROXIDOPA [Suspect]
     Active Substance: DROXIDOPA
     Indication: SHOCK
  31. DROXIDOPA [Suspect]
     Active Substance: DROXIDOPA
     Indication: HAEMODYNAMIC INSTABILITY
  32. PSEUDOEPHEDRINE. [Suspect]
     Active Substance: PSEUDOEPHEDRINE HYDROCHLORIDE
     Indication: GLOSSOPHARYNGEAL NEURALGIA
     Route: 065
     Dates: start: 2019

REACTIONS (1)
  - Treatment failure [Unknown]

NARRATIVE: CASE EVENT DATE: 2019
